FAERS Safety Report 19198391 (Version 1)
Quarter: 2021Q2

REPORT INFORMATION
  Report Type: Report from Study
  Country: None (occurrence: US)
  Receive Date: 20210430
  Receipt Date: 20210430
  Transmission Date: 20210717
  Serious: Yes (Other)
  Sender: FDA-Public Use
  Company Number: US-ABBVIE-21K-163-3882104-00

PATIENT
  Age: 72 Year
  Sex: Female

DRUGS (1)
  1. VENCLEXTA [Suspect]
     Active Substance: VENETOCLAX
     Indication: ACUTE MYELOID LEUKAEMIA
     Route: 048
     Dates: start: 20210408

REACTIONS (3)
  - Diarrhoea [Recovering/Resolving]
  - Neutrophil count decreased [Recovering/Resolving]
  - Haemoglobin abnormal [Recovering/Resolving]

NARRATIVE: CASE EVENT DATE: 202104
